FAERS Safety Report 6595889-4 (Version None)
Quarter: 2010Q1

REPORT INFORMATION
  Report Type: 
  Country: None (occurrence: None)
  Receive Date: 20100219
  Receipt Date: 20100219
  Transmission Date: 20100710
  Serious: Yes (Death, Hospitalization, Disabling)
  Sender: FDA-Public Use
  Company Number: None

PATIENT
  Age: 66 Year
  Sex: Male
  Weight: 71.2147 kg

DRUGS (1)
  1. REGLAN [Suspect]
     Indication: VOMITING
     Dosage: IV 3X DAY BEFORE MEALS AND AT BEDTIME 5 MG
     Route: 042
     Dates: start: 20091128, end: 20091213

REACTIONS (11)
  - ANXIETY [None]
  - CONFUSIONAL STATE [None]
  - DYSKINESIA [None]
  - FEELING JITTERY [None]
  - HALLUCINATION [None]
  - HEART RATE INCREASED [None]
  - HYPERHIDROSIS [None]
  - MUSCULOSKELETAL STIFFNESS [None]
  - PROTRUSION TONGUE [None]
  - TREMOR [None]
  - UNEVALUABLE EVENT [None]
